FAERS Safety Report 9324929 (Version 2)
Quarter: 2013Q3

REPORT INFORMATION
  Report Type: Spontaneous
  Country: BR (occurrence: BR)
  Receive Date: 20130603
  Receipt Date: 20130710
  Transmission Date: 20140515
  Serious: Yes (Other)
  Sender: FDA-Public Use
  Company Number: BR-PFIZER INC-2013158022

PATIENT
  Age: 88 Year
  Sex: Female
  Weight: 65 kg

DRUGS (9)
  1. XALATAN [Suspect]
     Indication: OPEN ANGLE GLAUCOMA
     Dosage: 3 UG, ONE AT NIGHT
     Route: 047
     Dates: start: 20091128
  2. COMBIGAN [Concomitant]
     Indication: GLAUCOMA
  3. LOSARTAN [Concomitant]
     Indication: HYPERTENSION
     Dosage: UNSPECIFIED DOSE, TWICE DAILY
  4. SPIRONOLACTONE [Concomitant]
     Indication: HYPERTENSION
     Dosage: 2 TABLETS OF 50MG (100MG) IN THE MORNING
  5. DIGOXIN [Concomitant]
     Indication: CARDIAC DISORDER
     Dosage: ONE TABLET (0.25MG) IN THE MORNING
  6. DIHYDROERGOCRISTINE [Concomitant]
     Indication: LABYRINTHITIS
     Dosage: 6 MG, 1X/DAY
  7. GLIBENCLAMIDE [Concomitant]
     Indication: DIABETES MELLITUS
     Dosage: UNSPECIFIED DOSE, TWICE DAILY
  8. OCUPRESS [Concomitant]
     Dosage: EVERY 12 HOURS
  9. GLAUCOTRAT [Concomitant]
     Dosage: UNK
     Dates: start: 20091128

REACTIONS (5)
  - Corneal opacity [Unknown]
  - Keratitis [Unknown]
  - Carotid artery occlusion [Unknown]
  - Product quality issue [Unknown]
  - Incorrect dose administered [Unknown]
